FAERS Safety Report 4294353-5 (Version None)
Quarter: 2004Q1

REPORT INFORMATION
  Report Type: 
  Country: None (occurrence: None)
  Receive Date: 20040211
  Receipt Date: 20030815
  Transmission Date: 20041129
  Serious: No
  Sender: FDA-Public Use
  Company Number: US-GLAXOSMITHKLINE-A0422213A

PATIENT
  Age: 58 Year
  Sex: Male

DRUGS (5)
  1. LAMICTAL [Suspect]
     Indication: BIPOLAR DISORDER
     Dosage: 50MG TWICE PER DAY
     Dates: start: 20030724
  2. LIBRIUM [Concomitant]
  3. LITHIUM CARBONATE [Concomitant]
  4. MONOPRIL [Concomitant]
  5. SERACTIL [Concomitant]

REACTIONS (2)
  - HYPOAESTHESIA [None]
  - TREMOR [None]
